FAERS Safety Report 11540391 (Version 1)
Quarter: 2015Q3

REPORT INFORMATION
  Report Type: Spontaneous
  Country: US (occurrence: US)
  Receive Date: 20150923
  Receipt Date: 20150923
  Transmission Date: 20151125
  Serious: No
  Sender: FDA-Public Use
  Company Number: US-BEH-2014045123

PATIENT
  Age: 68 Year
  Sex: Male
  Weight: 83 kg

DRUGS (12)
  1. OMNARIS [Concomitant]
     Active Substance: CICLESONIDE
  2. EPIPEN [Concomitant]
     Active Substance: EPINEPHRINE
  3. PRIVIGEN [Suspect]
     Active Substance: HUMAN IMMUNOGLOBULIN G
     Indication: IMMUNODEFICIENCY COMMON VARIABLE
     Route: 042
  4. VITAMIN B12 [Concomitant]
     Active Substance: CYANOCOBALAMIN
  5. VITAMIN D2 [Concomitant]
     Active Substance: ERGOCALCIFEROL
  6. DEPO-TESTOSTERONE [Concomitant]
     Active Substance: TESTOSTERONE CYPIONATE
  7. LISINOPRIL. [Concomitant]
     Active Substance: LISINOPRIL
  8. ASPIRIN. [Concomitant]
     Active Substance: ASPIRIN
  9. CIALIS [Concomitant]
     Active Substance: TADALAFIL
  10. ALL OTHER THERAPEUTIC PRODUCTS [Concomitant]
     Active Substance: UNSPECIFIED INGREDIENT
  11. SINGULAIR [Concomitant]
     Active Substance: MONTELUKAST SODIUM
  12. METFORMIN [Concomitant]
     Active Substance: METFORMIN HYDROCHLORIDE

REACTIONS (1)
  - Sinusitis [Unknown]

NARRATIVE: CASE EVENT DATE: 20140901
